FAERS Safety Report 8531253-6 (Version None)
Quarter: 2012Q3

REPORT INFORMATION
  Report Type: 
  Country: None (occurrence: None)
  Receive Date: 20120723
  Receipt Date: 20120712
  Transmission Date: 20120928
  Serious: Yes (Other)
  Sender: FDA-Public Use
  Company Number: US-ASTRAZENECA-2011SE78595

PATIENT
  Age: 46 Year
  Sex: Female

DRUGS (2)
  1. NEXIUM [Suspect]
     Route: 048
  2. SEROQUEL XR [Suspect]
     Route: 048

REACTIONS (7)
  - ADVERSE EVENT [None]
  - INSOMNIA [None]
  - AGGRESSION [None]
  - SUICIDAL IDEATION [None]
  - CRYING [None]
  - DEPRESSION [None]
  - AGITATION [None]
